FAERS Safety Report 9400604 (Version 1)
Quarter: 2013Q3

REPORT INFORMATION
  Report Type: Spontaneous
  Country: GB (occurrence: None)
  Receive Date: 20130711
  Receipt Date: 20130711
  Transmission Date: 20140515
  Serious: Yes (Hospitalization)
  Sender: FDA-Public Use
  Company Number: IPC201307-000260

PATIENT
  Age: 43 Year
  Sex: Female

DRUGS (5)
  1. PROPRANOLOL HYDROCHLORIDE [Suspect]
  2. FLUCLOXACILLIN [Suspect]
     Route: 048
  3. EPINEPHRINE [Suspect]
     Dosage: 0.5 MG (0.5 ML, 1:1000 SOLUTION), INTRAMUSCULAR
     Route: 030
  4. LANSOPRAZOLE [Suspect]
  5. FEXOFENADINE [Suspect]

REACTIONS (5)
  - Anaphylactic reaction [None]
  - Arteriospasm coronary [None]
  - Myocardial infarction [None]
  - Hypotension [None]
  - Chest discomfort [None]
